FAERS Safety Report 8490643 (Version 5)
Quarter: 2014Q1

REPORT INFORMATION
  Report Type: Report from Study
  Country: US (occurrence: US)
  Receive Date: 20120403
  Receipt Date: 20140114
  Transmission Date: 20141002
  Serious: Yes (Hospitalization, Other)
  Sender: FDA-Public Use
  Company Number: US-ELI_LILLY_AND_COMPANY-US201202003582

PATIENT
  Sex: Female

DRUGS (4)
  1. TERIPARATIDE [Suspect]
     Indication: OSTEOPOROSIS
     Dosage: 20 UG, QD
     Route: 058
     Dates: start: 20111209, end: 20131209
  2. KEFLEX                             /00145501/ [Concomitant]
     Dosage: 500 MG, QD
  3. THEOPHYLLINE [Concomitant]
  4. PREDNISONE [Concomitant]

REACTIONS (10)
  - Chronic obstructive pulmonary disease [Unknown]
  - Dyspnoea [Unknown]
  - Post procedural infection [Unknown]
  - Hiatus hernia [Unknown]
  - Obstructive airways disorder [Unknown]
  - Bronchitis [Unknown]
  - Cough [Unknown]
  - Expired drug administered [Unknown]
  - Osteomyelitis [Unknown]
  - Hearing impaired [Unknown]
